FAERS Safety Report 8355404-1 (Version None)
Quarter: 2012Q2

REPORT INFORMATION
  Report Type: 
  Country: None (occurrence: None)
  Receive Date: 20120511
  Receipt Date: 20120510
  Transmission Date: 20120825
  Serious: Yes (Death)
  Sender: FDA-Public Use
  Company Number: US-AMGEN-USACT2011017393

PATIENT
  Age: 51 Year
  Sex: Male
  Weight: 139.2 kg

DRUGS (17)
  1. EPOGEN [Concomitant]
     Indication: ANAEMIA
     Dosage: UNK
     Route: 042
     Dates: start: 20110112, end: 20110326
  2. VENOFER [Concomitant]
     Indication: ANAEMIA
     Dosage: 100 MG/M2, UNK
     Route: 042
     Dates: start: 20101226, end: 20110326
  3. PAROXETINE [Concomitant]
     Indication: DEPRESSION
     Dosage: 40 MG, UNK
     Route: 048
     Dates: start: 20101106, end: 20110326
  4. HECTOROL [Concomitant]
     Indication: HYPERPARATHYROIDISM
     Dosage: 2 MUG, UNK
     Route: 042
     Dates: start: 20110104, end: 20110128
  5. VENOFER [Concomitant]
  6. AMLODIPINE BESYLATE [Concomitant]
     Indication: HYPERTENSION
     Dosage: 10 MG, UNK
     Route: 048
     Dates: start: 20100807, end: 20110326
  7. CINACALCET HYDROCHLORIDE [Suspect]
     Indication: HYPERPARATHYROIDISM SECONDARY
     Dosage: 30 MG, QD
     Dates: start: 20110307, end: 20110307
  8. DIPHENHYDRAMINE HCL [Concomitant]
     Indication: NAUSEA
     Dosage: 50 MG, UNK
     Route: 048
     Dates: start: 20100101, end: 20110326
  9. CARVEDILOL [Concomitant]
     Indication: HYPERTENSION
     Dosage: 25 MG, UNK
     Route: 048
     Dates: start: 20100718, end: 20110326
  10. LOVASTATIN [Concomitant]
     Indication: HYPERLIPIDAEMIA
     Dosage: 40 MG, UNK
     Route: 048
     Dates: start: 20100819, end: 20110326
  11. ASPIRIN [Concomitant]
     Indication: PROPHYLAXIS
     Dosage: 325 MG, UNK
     Route: 048
     Dates: start: 20100807, end: 20110326
  12. HYDROCODONE BITARTRATE [Concomitant]
     Indication: ARTHRALGIA
     Dosage: 10 MG, UNK
     Route: 048
     Dates: start: 20100706, end: 20110326
  13. LISINOPRIL [Concomitant]
     Indication: HYPERTENSION
     Dosage: 20 MG, UNK
     Route: 048
     Dates: start: 20100223, end: 20110326
  14. RENVELA [Concomitant]
     Indication: HYPERPHOSPHATAEMIA
     Dosage: UNK
     Dates: start: 20101004
  15. HEPARIN [Concomitant]
     Indication: DIALYSIS
     Dosage: UNK
     Route: 042
     Dates: start: 20100101, end: 20110326
  16. VITAMIN D [Concomitant]
     Dosage: UNK
     Route: 048
     Dates: start: 20100227, end: 20110128
  17. PLAVIX [Concomitant]
     Dosage: 75 MG, UNK
     Route: 048
     Dates: start: 20091103, end: 20110326

REACTIONS (1)
  - SUDDEN DEATH [None]
